FAERS Safety Report 6286337-2 (Version None)
Quarter: 2009Q3

REPORT INFORMATION
  Report Type: 
  Country: None (occurrence: None)
  Receive Date: 20090728
  Receipt Date: 20090716
  Transmission Date: 20100115
  Serious: Yes (Hospitalization, Other)
  Sender: FDA-Public Use
  Company Number: US-PFIZER INC-2009241330

PATIENT
  Sex: Female
  Weight: 56.689 kg

DRUGS (23)
  1. ZITHROMAX [Suspect]
     Indication: LESION EXCISION
     Dosage: UNK
     Dates: start: 20090406
  2. REMICADE [Suspect]
     Indication: RHEUMATOID ARTHRITIS
     Dosage: 100 MG, UNK
     Route: 042
     Dates: start: 20080811
  3. REMICADE [Suspect]
     Dosage: 100 MG, UNK
     Dates: start: 20081006
  4. REMICADE [Suspect]
     Dosage: 100 MG, UNK
     Dates: start: 20090202
  5. LEVAQUIN [Suspect]
     Indication: LIMB INJURY
     Dosage: RECEIVED FULL COURSE, UNK
  6. LORTAB [Concomitant]
     Dosage: 7.5 MG, 1 IN 1 AS NEEDED
  7. ZYRTEC [Concomitant]
     Dosage: 10 MG, 1 IN 1 AS NEEDED
  8. VITAMIN B-12 [Concomitant]
     Dosage: 500 UG, 2X/DAY
  9. SYNTHROID [Concomitant]
     Dosage: 75 UG, 11 IN
  10. MONTELUKAST [Concomitant]
     Dosage: 10 MG, 1X/DAY
  11. PRILOSEC [Concomitant]
     Dosage: 20 MG, 2X/DAY
  12. MAGNESIUM OXIDE [Concomitant]
     Dosage: 400 MG, 2X/DAY
  13. LISINOPRIL [Concomitant]
     Dosage: 20 MG, 1X/DAY
  14. LASIX [Concomitant]
     Dosage: 40 MG, 1X/DAY
  15. POTASSIUM [Concomitant]
     Dosage: 20 MEQ, 1X/DAY
  16. FOLIC ACID [Concomitant]
     Dosage: 1 MG, 1X/DAY
  17. CELEBREX [Concomitant]
     Dosage: 100 MG, 2X/DAY
  18. BUSPAR [Concomitant]
     Dosage: 10 MG, 3 IN 1 AS NECESSARY
  19. AVANDAMET [Concomitant]
     Dosage: 1 DOSE (S), 2X/DAY
  20. ALENDRONATE SODIUM [Concomitant]
     Dosage: 70 MG,  1 IN 1 WEEK
  21. ASTELIN [Concomitant]
     Dosage: 274 UG, 1 IN 2 DAY
     Route: 045
  22. ASCORBIC ACID [Concomitant]
     Dosage: 500 MG, 2X/DAY
  23. IRON SULFATETHIAMIN COMPOUND TAB [Concomitant]
     Dosage: 325 MG, 2X/DAY

REACTIONS (7)
  - GASTROENTERITIS [None]
  - LIMB INJURY [None]
  - LIPASE INCREASED [None]
  - RENAL FAILURE ACUTE [None]
  - SEPTIC SHOCK [None]
  - SKIN LESION [None]
  - SMALL INTESTINAL OBSTRUCTION [None]
